FAERS Safety Report 9647615 (Version 1)
Quarter: 2013Q4

REPORT INFORMATION
  Report Type: Spontaneous
  Country: SG (occurrence: SG)
  Receive Date: 20131028
  Receipt Date: 20131028
  Transmission Date: 20140711
  Serious: Yes (Other)
  Sender: FDA-Public Use
  Company Number: SG-009507513-1310SGP008927

PATIENT
  Age: 61 Year
  Sex: Female

DRUGS (1)
  1. ZOCOR TAB 40 MG [Suspect]
     Dosage: 40 MG, QD
     Route: 048

REACTIONS (2)
  - Drug intolerance [Unknown]
  - Malaise [Unknown]
